FAERS Safety Report 5003202-9 (Version None)
Quarter: 2006Q2

REPORT INFORMATION
  Report Type: 
  Country: None (occurrence: None)
  Receive Date: 20060510
  Receipt Date: 20060503
  Transmission Date: 20061013
  Serious: Yes (Hospitalization)
  Sender: FDA-Public Use
  Company Number: B0422528A

PATIENT
  Age: 24 Year
  Sex: Female

DRUGS (3)
  1. IMITREX [Suspect]
     Indication: MIGRAINE
     Dosage: 50 MG / ORAL
     Route: 048
  2. RIZATRIPTAN BENZOATE [Concomitant]
  3. IMMUNOSUPPRESSIVE [Concomitant]

REACTIONS (6)
  - CARDIAC FAILURE [None]
  - CONDITION AGGRAVATED [None]
  - HEART TRANSPLANT REJECTION [None]
  - MIGRAINE [None]
  - NON-CARDIAC CHEST PAIN [None]
  - OESOPHAGEAL SPASM [None]
